FAERS Safety Report 10594277 (Version 2)
Quarter: 2014Q4

REPORT INFORMATION
  Report Type: Spontaneous
  Country: KR (occurrence: KR)
  Receive Date: 20141119
  Receipt Date: 20141125
  Transmission Date: 20150529
  Serious: Yes (Other)
  Sender: FDA-Public Use
  Company Number: KR-BAXTER-2014BAX067523

PATIENT

DRUGS (4)
  1. SALINE [Suspect]
     Active Substance: SODIUM CHLORIDE
     Indication: HAEMODIALYSIS
     Route: 010
  2. HEMODIALYSIS SOLUTION A [Suspect]
     Active Substance: UNSPECIFIED INGREDIENT
     Indication: HAEMODIALYSIS
     Route: 010
  3. BICART 650 [Suspect]
     Active Substance: SODIUM BICARBONATE
     Indication: HAEMODIALYSIS
     Route: 010
  4. HEPARIN [Suspect]
     Active Substance: HEPARIN SODIUM
     Indication: HAEMODIALYSIS
     Route: 010

REACTIONS (1)
  - Haemorrhage [Unknown]

NARRATIVE: CASE EVENT DATE: 20141106
